FAERS Safety Report 13425382 (Version 1)
Quarter: 2017Q2

REPORT INFORMATION
  Report Type: Spontaneous
  Country: TR (occurrence: TR)
  Receive Date: 20170411
  Receipt Date: 20170411
  Transmission Date: 20170830
  Serious: Yes (Death, Other)
  Sender: FDA-Public Use
  Company Number: TR-CIPLA LTD.-2017TR05455

PATIENT

DRUGS (19)
  1. FLUDARABINE [Suspect]
     Active Substance: FLUDARABINE PHOSPHATE
     Indication: ACUTE MYELOID LEUKAEMIA
     Dosage: 30 MG/M2/D, ON DAYS 1 TO 4, NEXT INDUCTION
     Route: 065
  2. PHENYTOIN. [Suspect]
     Active Substance: PHENYTOIN
     Indication: SEIZURE
     Dosage: 10MG/KG IN 2 DOSES (LOADING DOSE)
     Route: 065
  3. CYTARABINE. [Suspect]
     Active Substance: CYTARABINE
     Indication: ACUTE MYELOID LEUKAEMIA
     Dosage: 100 MG/M2 PER DAY ON DAY 1 TO 3
     Route: 042
  4. CYTARABINE. [Suspect]
     Active Substance: CYTARABINE
     Dosage: 2000 MG/M2/D ON DAYS 1 TO 4, NEXT INDUCTION
     Route: 065
  5. LEVETIRACETAM. [Suspect]
     Active Substance: LEVETIRACETAM
     Indication: POSTERIOR REVERSIBLE ENCEPHALOPATHY SYNDROME
     Dosage: UNK
     Route: 065
  6. ETOPOSIDE. [Suspect]
     Active Substance: ETOPOSIDE
     Indication: ACUTE MYELOID LEUKAEMIA
     Dosage: 150 MG/M2/D ON DAYS 6 TO 8
     Route: 065
  7. IDARUBICIN [Suspect]
     Active Substance: IDARUBICIN
     Indication: ACUTE MYELOID LEUKAEMIA
     Dosage: 12 MG/M2/D ON DAYS 3, 5 AND 7
     Route: 065
  8. SORAFENIB [Suspect]
     Active Substance: SORAFENIB
     Indication: ACUTE MYELOID LEUKAEMIA
     Dosage: 100 MG, BID
     Route: 065
  9. MITOXANTRONE [Suspect]
     Active Substance: MITOXANTRONE HYDROCHLORIDE
     Indication: ACUTE MYELOID LEUKAEMIA
     Dosage: 10 MG/M2/D, ON DAYS 3 AND 4
     Route: 065
  10. CLOFARABINE. [Suspect]
     Active Substance: CLOFARABINE
     Indication: ACUTE MYELOID LEUKAEMIA
     Dosage: 40 MG/M2/D, ON DAYS 1 TO 5, SALVAGE
     Route: 065
  11. CYTARABINE. [Suspect]
     Active Substance: CYTARABINE
     Dosage: 100 MG/M2/DOSE AT 12-HOUR INTERVALS FOR 6 DAYS (DAYS 3 TO 8)
     Route: 042
  12. MIDAZOLAM [Suspect]
     Active Substance: MIDAZOLAM HYDROCHLORIDE
     Indication: SEIZURE
     Dosage: 0.1 MG/KG, UNK
     Route: 042
  13. CYTARABINE. [Suspect]
     Active Substance: CYTARABINE
     Dosage: 40 MG, ON DAYS 1 AND 8
     Route: 037
  14. CYTARABINE. [Suspect]
     Active Substance: CYTARABINE
     Dosage: 3000 MG/M2, CONSOLIDATION HIGH DOSE, EVERY 12 HOURS FOR 6 DOSES (DAYS 1 TO 3)
     Route: 065
  15. CYTARABINE. [Suspect]
     Active Substance: CYTARABINE
     Dosage: UNK, ON DAY 1, CONSOLIDATION
     Route: 037
  16. CYTARABINE. [Suspect]
     Active Substance: CYTARABINE
     Dosage: 40 MG, ON DAY 1, SALVAGE
     Route: 037
  17. PHENYTOIN. [Suspect]
     Active Substance: PHENYTOIN
     Dosage: 6 TO 7MG/KG IN 2 DIVIDED DOSES (MAINTANENCE DOSE)
     Route: 065
  18. CYTARABINE. [Suspect]
     Active Substance: CYTARABINE
     Dosage: 1000 MG/M2/D, ON DAYS 1 TO 5, SALVAGE
     Route: 065
  19. IDARUBICIN [Suspect]
     Active Substance: IDARUBICIN
     Dosage: 12 MG/M2/D, ON DAYS 2 TO 4, NEXT INDUCTION
     Route: 065

REACTIONS (2)
  - Refractory cancer [Fatal]
  - Posterior reversible encephalopathy syndrome [Recovered/Resolved]
